FAERS Safety Report 11993861 (Version 1)
Quarter: 2016Q1

REPORT INFORMATION
  Report Type: Spontaneous
  Country: US (occurrence: None)
  Receive Date: 20160202
  Receipt Date: 20160202
  Transmission Date: 20160526
  Serious: Yes (Hospitalization)
  Sender: FDA-Public Use
  Company Number: None

PATIENT
  Age: 61 Year
  Sex: Female

DRUGS (11)
  1. MONTELUKAST [Concomitant]
     Active Substance: MONTELUKAST SODIUM
  2. REMICADE [Suspect]
     Active Substance: INFLIXIMAB
     Indication: RHEUMATOID ARTHRITIS
     Dosage: 200MG Q6 WEEKS IV
     Route: 042
     Dates: start: 20150721, end: 201601
  3. HCTZ [Concomitant]
     Active Substance: HYDROCHLOROTHIAZIDE
  4. ALBUTEROL. [Concomitant]
     Active Substance: ALBUTEROL
  5. FENTANYL. [Concomitant]
     Active Substance: FENTANYL
  6. NYSTATIN. [Concomitant]
     Active Substance: NYSTATIN
  7. OXYCODONE [Concomitant]
     Active Substance: OXYCODONE
  8. PIROXICAM. [Concomitant]
     Active Substance: PIROXICAM
  9. SPIRIVA [Concomitant]
     Active Substance: TIOTROPIUM BROMIDE MONOHYDRATE
  10. PREDNISONE. [Concomitant]
     Active Substance: PREDNISONE
  11. APAP [Concomitant]
     Active Substance: ACETAMINOPHEN

REACTIONS (2)
  - Pneumonia [None]
  - Influenza [None]

NARRATIVE: CASE EVENT DATE: 20160115
